FAERS Safety Report 20852909 (Version 3)
Quarter: 2022Q2

REPORT INFORMATION
  Report Type: Spontaneous
  Country: PL (occurrence: PL)
  Receive Date: 20220520
  Receipt Date: 20220624
  Transmission Date: 20220721
  Serious: Yes (Other)
  Sender: FDA-Public Use
  Company Number: PL-PFM-2022-04036

PATIENT
  Age: 51 Year
  Sex: Female

DRUGS (4)
  1. CISPLATIN [Suspect]
     Active Substance: CISPLATIN
     Indication: Lung adenocarcinoma
     Dosage: UNK UNK, CYCLE (CYCLICAL, 3 CYCLES OF PN SCHEME)
     Route: 065
     Dates: start: 201207, end: 201209
  2. VINORELBINE [Suspect]
     Active Substance: VINORELBINE TARTRATE
     Indication: Lung adenocarcinoma
     Dosage: UNK, CYCLE (CYCLICAL, 3 CYCLES OF PN SCHEME)
     Route: 065
     Dates: start: 201207, end: 201209
  3. PEMETREXED [Suspect]
     Active Substance: PEMETREXED
     Indication: Lung adenocarcinoma
     Dosage: UNK, INITIATED-??-MAR-2013
     Route: 065
     Dates: end: 201403
  4. ALIMTA [Suspect]
     Active Substance: PEMETREXED DISODIUM
     Indication: Lung adenocarcinoma
     Dosage: UNK, INITIATED-??-MAR-2013
     Route: 065
     Dates: end: 201403

REACTIONS (7)
  - Polyneuropathy [Unknown]
  - Malignant neoplasm progression [Unknown]
  - Nephropathy toxic [Unknown]
  - Asthenia [Unknown]
  - Therapeutic product effect incomplete [Unknown]
  - Lung neoplasm malignant [Unknown]
  - Therapy partial responder [Unknown]

NARRATIVE: CASE EVENT DATE: 20120101
